FAERS Safety Report 8512583-0 (Version None)
Quarter: 2012Q3

REPORT INFORMATION
  Report Type: 
  Country: None (occurrence: None)
  Receive Date: 20120716
  Receipt Date: 20120710
  Transmission Date: 20120928
  Serious: Yes (Death, Hospitalization, Other)
  Sender: FDA-Public Use
  Company Number: GB-PFIZER INC-2010130445

PATIENT
  Age: 75 Year
  Sex: Female
  Weight: 62.6 kg

DRUGS (16)
  1. ARAVA [Suspect]
     Indication: RHEUMATOID ARTHRITIS
     Dosage: 20 MG, 1X/DAY
     Route: 048
     Dates: start: 20020301
  2. FENTANYL [Suspect]
     Indication: ANAESTHESIA
     Dosage: UNK
     Route: 042
     Dates: start: 20020301, end: 20020301
  3. LISINOPRIL [Suspect]
     Indication: HYPERTENSION
     Dosage: UNK
     Route: 048
     Dates: start: 20020301
  4. MIDAZOLAM [Suspect]
     Indication: ANAESTHESIA
     Dosage: UNK
     Route: 042
     Dates: start: 20020301, end: 20020301
  5. PANCURONIUM BROMIDE [Suspect]
     Indication: MUSCLE RELAXANT THERAPY
     Dosage: UNK
     Dates: start: 20020301, end: 20020301
  6. DILTIAZEM HCL [Suspect]
     Indication: HYPERTENSION
     Dosage: UNK
     Dates: start: 20020301
  7. PROPOFOL [Suspect]
     Indication: ANAESTHESIA
     Dosage: UNK
     Route: 042
     Dates: start: 20020301, end: 20020301
  8. FLUTICASONE PROPIONATE [Concomitant]
     Dosage: 1 UG, 2X/DAY
     Route: 045
  9. NITROGLYCERIN [Concomitant]
     Indication: ANGINA PECTORIS
     Dosage: UNK
  10. ATORVASTATIN CALCIUM [Suspect]
     Indication: HYPERCHOLESTEROLAEMIA
     Dosage: UNK
     Dates: start: 19990101
  11. LANSOPRAZOLE [Suspect]
     Indication: DUODENAL ULCER
     Dosage: UNK
     Dates: start: 20010301
  12. ACETAMINOPHEN AND CODEINE PHOSPHATE [Suspect]
     Indication: RHEUMATOID ARTHRITIS
     Dosage: UNK
     Dates: start: 20020301
  13. NITROGLYCERIN [Suspect]
     Indication: PAIN
     Dosage: UNK
     Route: 048
     Dates: start: 20020301
  14. BUDESONIDE [Suspect]
     Indication: ASTHMA
     Dosage: UNK
     Route: 055
     Dates: start: 20020301
  15. QUININE SULFATE [Suspect]
     Indication: MUSCLE SPASMS
     Dosage: UNK
  16. ACETYLSALICYLIC ACID SRT [Suspect]
     Indication: PAIN
     Dosage: UNK
     Dates: start: 20020301

REACTIONS (24)
  - HEPATORENAL SYNDROME [None]
  - HEPATIC CONGESTION [None]
  - RENAL TUBULAR NECROSIS [None]
  - ABDOMINAL RIGIDITY [None]
  - COAGULOPATHY [None]
  - RENAL ISCHAEMIA [None]
  - RENAL FAILURE [None]
  - DIVERTICULITIS [None]
  - ABDOMINAL PAIN UPPER [None]
  - HYPOVOLAEMIA [None]
  - HEPATOTOXICITY [None]
  - HAEMATEMESIS [None]
  - GASTROINTESTINAL HAEMORRHAGE [None]
  - CORONARY ARTERY DISEASE [None]
  - HAEMODIALYSIS [None]
  - MYOCARDIAL ISCHAEMIA [None]
  - DUODENAL ULCER [None]
  - ACUTE HEPATIC FAILURE [None]
  - LABILE BLOOD PRESSURE [None]
  - HEPATIC ISCHAEMIA [None]
  - HEPATOCELLULAR INJURY [None]
  - MULTI-ORGAN FAILURE [None]
  - INTESTINAL ISCHAEMIA [None]
  - INCISION SITE HAEMORRHAGE [None]
